FAERS Safety Report 21088285 (Version 1)
Quarter: 2022Q3

REPORT INFORMATION
  Report Type: Spontaneous
  Country: US (occurrence: None)
  Receive Date: 20220715
  Receipt Date: 20220715
  Transmission Date: 20221026
  Serious: Yes (Hospitalization)
  Sender: FDA-Public Use
  Company Number: None

PATIENT
  Age: 8 Year
  Sex: Female
  Weight: 28.5 kg

DRUGS (2)
  1. CYCLOPHOSPHAMIDE [Suspect]
     Active Substance: CYCLOPHOSPHAMIDE
     Dates: end: 20220701
  2. TOPOTECAN [Suspect]
     Active Substance: TOPOTECAN HYDROCHLORIDE
     Dates: end: 20220701

REACTIONS (6)
  - Appendicitis [None]
  - Rhinorrhoea [None]
  - Stomatitis [None]
  - Tachycardia [None]
  - Increased tendency to bruise [None]
  - Pulmonary embolism [None]

NARRATIVE: CASE EVENT DATE: 20220709
